FAERS Safety Report 9735665 (Version 2)
Quarter: 2014Q2

REPORT INFORMATION
  Report Type: Spontaneous
  Country: US (occurrence: None)
  Receive Date: 20131204
  Receipt Date: 20140409
  Transmission Date: 20141212
  Serious: Yes (Hospitalization, Other)
  Sender: FDA-Public Use
  Company Number: US-000866

PATIENT
  Age: 52 Year
  Sex: Female

DRUGS (2)
  1. GATTEX 0.23 ML [Suspect]
     Indication: SHORT-BOWEL SYNDROME
     Route: 058
     Dates: start: 20131028, end: 201312
  2. SOLUTION FOR PARENTERAL NUTRITION [Concomitant]

REACTIONS (6)
  - Pneumonia [None]
  - Body temperature increased [None]
  - Faecal volume increased [None]
  - Enterostomy [None]
  - Stoma site haemorrhage [None]
  - Cough [None]
